FAERS Safety Report 5477219-4 (Version None)
Quarter: 2007Q4

REPORT INFORMATION
  Report Type: 
  Country: None (occurrence: None)
  Receive Date: 20071004
  Receipt Date: 20071001
  Transmission Date: 20080405
  Serious: Yes (Life-Threatening, Hospitalization)
  Sender: FDA-Public Use
  Company Number: D0054718A

PATIENT
  Age: 75 Year
  Sex: Female
  Weight: 91.8 kg

DRUGS (7)
  1. ARIXTRA [Suspect]
     Indication: PROPHYLAXIS
     Dosage: 2.5MG UNKNOWN
     Route: 065
     Dates: start: 20070823, end: 20070824
  2. NEXIUM [Concomitant]
     Dosage: 20MG IN THE MORNING
     Route: 065
  3. CARMEN [Concomitant]
     Dosage: 10MG PER DAY
     Route: 065
  4. RAMIPRIL [Concomitant]
     Dosage: 2.5MG IN THE MORNING
     Route: 065
  5. FERROUS SULFATE + FOLIC ACID [Concomitant]
     Route: 065
     Dates: start: 20070822
  6. ACEMETACIN [Concomitant]
     Dosage: 30MG THREE TIMES PER DAY
     Route: 065
     Dates: start: 20070822
  7. PERFALGAN [Concomitant]
     Dosage: 10MG PER DAY
     Route: 065
     Dates: start: 20070824

REACTIONS (7)
  - ANAEMIA FOLATE DEFICIENCY [None]
  - COR PULMONALE ACUTE [None]
  - DEEP VEIN THROMBOSIS [None]
  - HYPOXIA [None]
  - PAIN IN EXTREMITY [None]
  - PULMONARY EMBOLISM [None]
  - SYNCOPE [None]
